FAERS Safety Report 10810815 (Version 1)
Quarter: 2015Q1

REPORT INFORMATION
  Report Type: Report from Study
  Country: US (occurrence: US)
  Receive Date: 20150217
  Receipt Date: 20150217
  Transmission Date: 20150721
  Serious: No
  Sender: FDA-Public Use
  Company Number: US-ABBVIE-14K-163-1216041-00

PATIENT
  Age: 59 Year
  Sex: Male

DRUGS (8)
  1. HERBAL NOS [Concomitant]
     Active Substance: HERBALS
     Indication: DEPRESSION
  2. TRAZODONE [Concomitant]
     Active Substance: TRAZODONE HYDROCHLORIDE
     Indication: INSOMNIA
     Dosage: VERY RARELY
  3. HUMIRA [Suspect]
     Active Substance: ADALIMUMAB
     Dates: start: 20140319
  4. HERBAL NOS [Concomitant]
     Active Substance: HERBALS
     Indication: BIPOLAR DISORDER
  5. HERBAL NOS [Concomitant]
     Active Substance: HERBALS
     Indication: PHYTOTHERAPY
  6. HUMIRA [Suspect]
     Active Substance: ADALIMUMAB
     Indication: PSORIASIS
     Dosage: INITIAL DOSE
     Dates: start: 20131015, end: 20131015
  7. VITAMINS [Concomitant]
     Active Substance: VITAMINS
     Indication: VITAMIN SUPPLEMENTATION
  8. HERBAL NOS [Concomitant]
     Active Substance: HERBALS
     Indication: ANXIETY

REACTIONS (1)
  - Drug ineffective [Not Recovered/Not Resolved]

NARRATIVE: CASE EVENT DATE: 20131015
